FAERS Safety Report 6433768-3 (Version None)
Quarter: 2009Q4

REPORT INFORMATION
  Report Type: 
  Country: None (occurrence: None)
  Receive Date: 20091110
  Receipt Date: 20091102
  Transmission Date: 20100525
  Serious: Yes (Other)
  Sender: FDA-Public Use
  Company Number: US-ROCHE-666690

PATIENT
  Sex: Male
  Weight: 114.8 kg

DRUGS (1)
  1. CAPECITABINE [Suspect]
     Indication: HEPATIC NEOPLASM MALIGNANT
     Dosage: 150 MG TABLET, 1 DAILY
     Route: 048
     Dates: start: 20090929

REACTIONS (2)
  - OEDEMA PERIPHERAL [None]
  - TRANSFUSION [None]
